FAERS Safety Report 15531702 (Version 2)
Quarter: 2018Q4

REPORT INFORMATION
  Report Type: Spontaneous
  Country: US (occurrence: US)
  Receive Date: 20181019
  Receipt Date: 20181108
  Transmission Date: 20190205
  Serious: No
  Sender: FDA-Public Use
  Company Number: US-PFIZER INC-2018421011

PATIENT
  Age: 65 Year
  Sex: Female
  Weight: 74.84 kg

DRUGS (2)
  1. CELECOXIB. [Suspect]
     Active Substance: CELECOXIB
     Indication: PAIN
     Dosage: 200 MG, DAILY
     Dates: start: 20180917
  2. CELECOXIB. [Suspect]
     Active Substance: CELECOXIB
     Indication: EXOSTOSIS
     Dosage: 2 DF, 2X/DAY [TWO PILLS TWICE A DAY FOR ABOUT THREE DAYS]
     Dates: start: 201810, end: 201810

REACTIONS (1)
  - Drug ineffective [Unknown]

NARRATIVE: CASE EVENT DATE: 201810
